FAERS Safety Report 6372492-2 (Version None)
Quarter: 2009Q3

REPORT INFORMATION
  Report Type: 
  Country: None (occurrence: None)
  Receive Date: 20090924
  Receipt Date: 20090129
  Transmission Date: 20100115
  Serious: No
  Sender: FDA-Public Use
  Company Number: US-ASTRAZENECA-2008UW15326

PATIENT
  Age: 51 Year
  Sex: Female
  Weight: 93.4 kg

DRUGS (4)
  1. SEROQUEL [Suspect]
     Route: 048
     Dates: start: 20080701
  2. BUSPAR [Interacting]
  3. TRAMADOL HCL [Interacting]
  4. AMITRIPTYLINE [Interacting]

REACTIONS (6)
  - CARDIAC FLUTTER [None]
  - DYSPNOEA [None]
  - FATIGUE [None]
  - HEART RATE DECREASED [None]
  - SINUS TACHYCARDIA [None]
  - SLUGGISHNESS [None]
